FAERS Safety Report 4317575-3 (Version None)
Quarter: 2004Q1

REPORT INFORMATION
  Report Type: 
  Country: None (occurrence: None)
  Receive Date: 20040312
  Receipt Date: 20040302
  Transmission Date: 20041129
  Serious: Yes (Death, Life-Threatening)
  Sender: FDA-Public Use
  Company Number: 2004011748

PATIENT
  Age: 71 Year
  Sex: Male
  Weight: 53 kg

DRUGS (18)
  1. DIFLUCAN [Suspect]
     Indication: BLOOD BETA-D-GLUCAN INCREASED
     Dosage: 50 MG (DAILY), INTRAVENOUS
     Route: 042
     Dates: start: 20040216, end: 20040218
  2. MINOCYCLINE HYDROCHLORIDE [Concomitant]
  3. PIPERACILLIN SODIUM [Concomitant]
  4. CIPROFLOXACIN [Concomitant]
  5. HICALIQ (GLUCOSE, POTASSIUM ACETATE, CALCIUM GLUCONATE, MAGNESIUM SULF [Concomitant]
  6. MULTAMIN (VITAMINS NOS) [Concomitant]
  7. POTASSIUM CHLORIDE [Concomitant]
  8. NAFAMOSTAT MESILATE (NAFAMOSTAT MESILATE) [Concomitant]
  9. OMEPRAZOLE [Concomitant]
  10. PROPOFOL [Concomitant]
  11. INSULIN [Concomitant]
  12. PENTAMIDINE (PENTAMIDINE) [Concomitant]
  13. GALENIC /PANIPENEM/BETAMIPRON/ (BETAMIPRON, PANIPENEM) [Concomitant]
  14. IMMUNE GLOBULIN INTRAVENOUS (HUMAN) [Concomitant]
  15. ALBUMIN (HUMAN) [Concomitant]
  16. METHYLPREDNISOLONE [Concomitant]
  17. SIVELESTAT (SIVELESTAT) [Concomitant]
  18. CEFOTIAM HYDROCHLORIDE [Concomitant]

REACTIONS (19)
  - ACUTE RESPIRATORY DISTRESS SYNDROME [None]
  - ACUTE RESPIRATORY FAILURE [None]
  - BLOOD PRESSURE SYSTOLIC DECREASED [None]
  - CARDIAC ARREST [None]
  - CARDIAC FAILURE [None]
  - DISSEMINATED INTRAVASCULAR COAGULATION [None]
  - DRUG INEFFECTIVE [None]
  - ERYTHEMA MARGINATUM [None]
  - GASTRIC HAEMORRHAGE [None]
  - HEPATIC CIRRHOSIS [None]
  - HEPATIC CONGESTION [None]
  - INTERSTITIAL LUNG DISEASE [None]
  - LUNG CONSOLIDATION [None]
  - MYDRIASIS [None]
  - PANCYTOPENIA [None]
  - PNEUMOCYSTIS CARINII PNEUMONIA [None]
  - RENAL FAILURE ACUTE [None]
  - SINUS BRADYCARDIA [None]
  - SYSTEMIC INFLAMMATORY RESPONSE SYNDROME [None]
